FAERS Safety Report 19103261 (Version 1)
Quarter: 2021Q2

REPORT INFORMATION
  Report Type: Report from Study
  Country: US (occurrence: US)
  Receive Date: 20210407
  Receipt Date: 20210407
  Transmission Date: 20210717
  Serious: Yes (Hospitalization, Other)
  Sender: FDA-Public Use
  Company Number: US-GLAXOSMITHKLINE-CM2021GSK076274

PATIENT
  Age: 76 Year
  Sex: Male

DRUGS (3)
  1. QUININE [Concomitant]
     Active Substance: QUININE
     Indication: MALARIA
     Dosage: UNK
  2. ATOVAQUONE + PROGUANIL HYDROCHLORIDE [Suspect]
     Active Substance: ATOVAQUONE\PROGUANIL HYDROCHLORIDE
     Indication: MALARIA PROPHYLAXIS
     Dosage: UNK
  3. DOXYCYCLINE. [Concomitant]
     Active Substance: DOXYCYCLINE
     Indication: TICK-BORNE FEVER
     Dosage: UNK
     Route: 048

REACTIONS (3)
  - Drug ineffective [Unknown]
  - Pyrexia [Unknown]
  - Plasmodium ovale infection [Unknown]
